FAERS Safety Report 25569592 (Version 1)
Quarter: 2025Q3

REPORT INFORMATION
  Report Type: Spontaneous
  Country: ID (occurrence: ID)
  Receive Date: 20250716
  Receipt Date: 20250716
  Transmission Date: 20251020
  Serious: Yes (Other)
  Sender: ALEXION PHARMACEUTICALS
  Company Number: ID-ASTRAZENECA-202507ASI009370ID

PATIENT
  Age: 56 Year
  Sex: Female

DRUGS (1)
  1. LYNPARZA [Suspect]
     Active Substance: OLAPARIB
     Indication: Prophylaxis
     Dosage: 300 MILLIGRAM, BID
     Route: 065

REACTIONS (5)
  - Headache [Unknown]
  - Metastases to central nervous system [Unknown]
  - Nausea [Unknown]
  - Fatigue [Unknown]
  - Diplopia [Unknown]
